FAERS Safety Report 23443215 (Version 3)
Quarter: 2024Q1

REPORT INFORMATION
  Report Type: Spontaneous
  Country: US (occurrence: US)
  Receive Date: 20240125
  Receipt Date: 20240322
  Transmission Date: 20240410
  Serious: No
  Sender: FDA-Public Use
  Company Number: US-SA-SAC20240119000282

PATIENT
  Age: 45 Year
  Sex: Male

DRUGS (1)
  1. DUPIXENT [Suspect]
     Active Substance: DUPILUMAB
     Indication: Asthma
     Dosage: 300 MG, QOW
     Route: 058
     Dates: start: 201903

REACTIONS (9)
  - Diarrhoea [Unknown]
  - Flushing [Unknown]
  - Visual impairment [Unknown]
  - Liver disorder [Unknown]
  - Constipation [Unknown]
  - Yellow skin [Unknown]
  - Condition aggravated [Unknown]
  - Eye disorder [Unknown]
  - Chromaturia [Unknown]
